FAERS Safety Report 5803876-6 (Version None)
Quarter: 2008Q3

REPORT INFORMATION
  Report Type: 
  Country: None (occurrence: None)
  Receive Date: 20080708
  Receipt Date: 20080702
  Transmission Date: 20090109
  Serious: Yes (Other)
  Sender: FDA-Public Use
  Company Number: FR-PFIZER INC-2008037346

PATIENT
  Sex: Male
  Weight: 81 kg

DRUGS (12)
  1. TAHOR [Suspect]
     Indication: PROPHYLAXIS
     Dates: start: 20061130, end: 20080130
  2. TAHOR [Suspect]
     Indication: HEART VALVE REPLACEMENT
  3. KARDEGIC [Concomitant]
     Dates: start: 20061130
  4. LASIX [Concomitant]
  5. CORDARONE [Concomitant]
  6. EUPRESSYL [Concomitant]
  7. COVERSYL [Concomitant]
  8. TENORMIN [Concomitant]
  9. PREVISCAN [Concomitant]
  10. DAFALGAN [Concomitant]
     Indication: PAIN
  11. FLUDEX [Concomitant]
  12. NOVOLOG MIX 70/30 [Concomitant]

REACTIONS (2)
  - TENDON RUPTURE [None]
  - TENDONITIS [None]
